FAERS Safety Report 13643729 (Version 1)
Quarter: 2017Q2

REPORT INFORMATION
  Report Type: Spontaneous
  Country: FR (occurrence: FR)
  Receive Date: 20170612
  Receipt Date: 20170612
  Transmission Date: 20170830
  Serious: Yes (Other)
  Sender: FDA-Public Use
  Company Number: FR-BAYER-2017-107746

PATIENT
  Age: 40 Year
  Sex: Female

DRUGS (1)
  1. MIRENA [Suspect]
     Active Substance: LEVONORGESTREL
     Indication: CONTRACEPTION
     Dosage: 20 MCG/24HR, CONT
     Route: 015
     Dates: start: 20140120, end: 20140515

REACTIONS (12)
  - Diffuse alopecia [Unknown]
  - Abnormal weight gain [Unknown]
  - Abdominal pain [Unknown]
  - Arthralgia [Unknown]
  - Loss of libido [Unknown]
  - Hypertrichosis [Unknown]
  - Fasciitis [Not Recovered/Not Resolved]
  - Stress [Unknown]
  - Depression [Unknown]
  - Anxiety [Unknown]
  - Vulvovaginal dryness [Unknown]
  - Migraine [Unknown]

NARRATIVE: CASE EVENT DATE: 2014
